FAERS Safety Report 7228916-1 (Version None)
Quarter: 2011Q1

REPORT INFORMATION
  Report Type: 
  Country: None (occurrence: None)
  Receive Date: 20110117
  Receipt Date: 20101116
  Transmission Date: 20110831
  Serious: Yes (Death, Life-Threatening, Hospitalization, Other)
  Sender: FDA-Public Use
  Company Number: US-CELGENEUS-99-22601013

PATIENT
  Sex: Female

DRUGS (27)
  1. VANCOMYCIN HCL [Concomitant]
     Route: 051
     Dates: start: 20060210
  2. CORTICOSTEROIDS [Concomitant]
     Route: 045
     Dates: start: 20060304
  3. NYSTATIN [Concomitant]
     Route: 065
     Dates: start: 20060101
  4. HYDROCORTISONE [Concomitant]
     Route: 065
     Dates: start: 20060101
  5. DOCUSATE SODIUM [Concomitant]
     Route: 065
     Dates: start: 20060101
  6. BACTRIM [Concomitant]
     Indication: URINARY TRACT INFECTION
     Route: 065
     Dates: start: 20060101
  7. ROMIDEPSIN [Suspect]
     Route: 051
     Dates: start: 20060126, end: 20060202
  8. ROMIDEPSIN [Suspect]
     Route: 051
  9. DEXTROMETHORPHAN PLUS GUAIFENESIN [Concomitant]
     Route: 065
     Dates: start: 20060101
  10. POTASSIUM CHLORIDE [Concomitant]
     Route: 051
     Dates: start: 20060101
  11. TRIAMCINOLONE [Concomitant]
     Dates: start: 20060101
  12. HYDROMORPHONE [Concomitant]
     Route: 051
     Dates: start: 20060101
  13. ACETAMINOPHEN AND HYDROCODONE BITARTRATE [Concomitant]
     Route: 065
     Dates: start: 20060101
  14. FENOFIBRATE [Concomitant]
     Route: 045
  15. DOXEPIN HCL [Concomitant]
     Route: 045
     Dates: start: 20060215
  16. ACETAMINOPHEN [Concomitant]
     Route: 065
     Dates: start: 20060101
  17. TRIMETHOPRIM + SULFAMETHOXAZOLE [Concomitant]
     Route: 065
     Dates: start: 20060101
  18. PRILOCAINE HYDROCHLORIDE [Concomitant]
     Route: 065
  19. FERROUS SULFATE TAB [Concomitant]
     Route: 065
     Dates: start: 20060215
  20. MUPIROCIN CALCIUM [Concomitant]
     Dates: start: 20060101
  21. ESOMEPRAZOLE MAGNESIUM [Concomitant]
  22. HEPARIN [Concomitant]
     Route: 065
     Dates: start: 20060201
  23. KETOCONAZOLE [Concomitant]
     Dates: start: 20060101
  24. MULTIVITAMIN [Concomitant]
     Route: 065
     Dates: start: 20060101
  25. ENOXAPARIN SODIUM [Concomitant]
     Route: 065
  26. FUROSEMIDE [Concomitant]
     Route: 065
     Dates: start: 20060101
  27. CLINDAMYCIN [Concomitant]
     Indication: PROPHYLAXIS
     Route: 065

REACTIONS (14)
  - PULMONARY EMBOLISM [None]
  - GENERALISED OEDEMA [None]
  - MEDIASTINAL MASS [None]
  - ACIDOSIS [None]
  - ACUTE MYOCARDIAL INFARCTION [None]
  - HYPOALBUMINAEMIA [None]
  - TUMOUR LYSIS SYNDROME [None]
  - VENTRICULAR TACHYCARDIA [None]
  - HYPOTENSION [None]
  - CARDIAC TAMPONADE [None]
  - CARDIAC FAILURE CONGESTIVE [None]
  - ATRIOVENTRICULAR BLOCK SECOND DEGREE [None]
  - ATRIOVENTRICULAR BLOCK FIRST DEGREE [None]
  - TROPONIN I INCREASED [None]
